FAERS Safety Report 5809695-9 (Version None)
Quarter: 2008Q3

REPORT INFORMATION
  Report Type: 
  Country: None (occurrence: None)
  Receive Date: 20080711
  Receipt Date: 20080711
  Transmission Date: 20090109
  Serious: Yes (Other)
  Sender: FDA-Public Use
  Company Number: None

PATIENT
  Sex: Male
  Weight: 106.5953 kg

DRUGS (2)
  1. PROVENTIL-HFA [Suspect]
     Indication: ASTHMA
     Dosage: 2 PUFFS AS NEEDED
     Dates: start: 20080508, end: 20080523
  2. PROVENTIL-HFA [Suspect]
     Indication: MULTIPLE ALLERGIES
     Dosage: 2 PUFFS AS NEEDED
     Dates: start: 20080508, end: 20080523

REACTIONS (2)
  - DRUG INEFFECTIVE [None]
  - PHARMACEUTICAL PRODUCT COMPLAINT [None]
